FAERS Safety Report 15676395 (Version 2)
Quarter: 2019Q2

REPORT INFORMATION
  Report Type: Spontaneous
  Country: US (occurrence: US)
  Receive Date: 20181130
  Receipt Date: 20190510
  Transmission Date: 20190711
  Serious: Yes (Other)
  Sender: FDA-Public Use
  Company Number: US-ABBVIE-18S-163-2568570-00

PATIENT
  Sex: Female

DRUGS (1)
  1. LUPRON DEPOT [Suspect]
     Active Substance: LEUPROLIDE ACETATE
     Indication: ENDOMETRIOSIS
     Route: 050

REACTIONS (9)
  - Mass excision [Unknown]
  - Tooth disorder [Unknown]
  - Nodule [Unknown]
  - Pain [Unknown]
  - Sciatica [Unknown]
  - Photosensitivity reaction [Unknown]
  - Photophobia [Unknown]
  - Arthralgia [Unknown]
  - Enamel anomaly [Unknown]
